FAERS Safety Report 9306287 (Version 1)
Quarter: 2013Q2

REPORT INFORMATION
  Report Type: Spontaneous
  Country: IE (occurrence: IE)
  Receive Date: 20130523
  Receipt Date: 20130523
  Transmission Date: 20140414
  Serious: Yes (Hospitalization)
  Sender: FDA-Public Use
  Company Number: IE-MYLANLABS-2013S1010647

PATIENT
  Age: 43 Year
  Sex: Female

DRUGS (7)
  1. CITALOPRAM [Suspect]
     Indication: PANIC ATTACK
     Route: 048
     Dates: start: 2005, end: 20080822
  2. LITHIUM [Concomitant]
     Indication: PRODUCT USED FOR UNKNOWN INDICATION
  3. RIVOTRIL [Concomitant]
     Indication: PRODUCT USED FOR UNKNOWN INDICATION
  4. ZYPREXA [Concomitant]
     Indication: PRODUCT USED FOR UNKNOWN INDICATION
  5. SEROQUEL [Concomitant]
     Indication: PRODUCT USED FOR UNKNOWN INDICATION
  6. LAMICTAL [Concomitant]
     Indication: PRODUCT USED FOR UNKNOWN INDICATION
  7. XANAX [Concomitant]
     Indication: PRODUCT USED FOR UNKNOWN INDICATION

REACTIONS (7)
  - Bipolar disorder [Recovering/Resolving]
  - Irritability [Recovering/Resolving]
  - Psychomotor hyperactivity [Recovering/Resolving]
  - Compulsive shopping [Recovering/Resolving]
  - Mood swings [Recovering/Resolving]
  - Mania [Recovering/Resolving]
  - Hypomania [Recovering/Resolving]
